FAERS Safety Report 9933383 (Version 2)
Quarter: 2014Q1

REPORT INFORMATION
  Report Type: Report from Study
  Country: US (occurrence: US)
  Receive Date: 20140228
  Receipt Date: 20140228
  Transmission Date: 20141002
  Serious: No
  Sender: FDA-Public Use
  Company Number: US-MYLANLABS-2013S1007729

PATIENT
  Age: 21 Year
  Sex: Female
  Weight: 61.24 kg

DRUGS (3)
  1. AMNESTEEM CAPSULES [Suspect]
     Indication: ACNE
     Route: 048
     Dates: start: 20120913
  2. YAZ [Concomitant]
     Dosage: 3MG/20MCG
     Dates: start: 20120814
  3. CLARITIN /00917501/ [Concomitant]
     Dosage: 3MG/20MCG
     Dates: start: 20120814

REACTIONS (2)
  - Dry skin [Not Recovered/Not Resolved]
  - Unevaluable event [Not Recovered/Not Resolved]
